FAERS Safety Report 7069665-2 (Version None)
Quarter: 2010Q4

REPORT INFORMATION
  Report Type: 
  Country: None (occurrence: None)
  Receive Date: 20101028
  Receipt Date: 20100322
  Transmission Date: 20110411
  Serious: No
  Sender: FDA-Public Use
  Company Number: US-WYE-H14313510

PATIENT
  Age: 70 Year
  Sex: Female

DRUGS (2)
  1. EFFEXOR [Suspect]
     Indication: ANXIETY
  2. EFFEXOR [Suspect]
     Indication: DEPRESSION

REACTIONS (6)
  - DIZZINESS [None]
  - DRUG WITHDRAWAL SYNDROME [None]
  - HEADACHE [None]
  - HYPERHIDROSIS [None]
  - NAUSEA [None]
  - SOMNOLENCE [None]
